FAERS Safety Report 10267774 (Version 2)
Quarter: 2014Q2

REPORT INFORMATION
  Report Type: Report from Study
  Country: FR (occurrence: FR)
  Receive Date: 20140630
  Receipt Date: 20140630
  Transmission Date: 20141212
  Serious: Yes (Other)
  Sender: FDA-Public Use
  Company Number: FR-BAYER-2013-054201

PATIENT
  Age: 67 Year
  Sex: Male

DRUGS (5)
  1. REGORAFENIB [Suspect]
     Indication: COLORECTAL CANCER METASTATIC
     Dosage: 160 MG, QD
     Dates: start: 20130406, end: 20130412
  2. REGORAFENIB [Suspect]
     Indication: COLORECTAL CANCER METASTATIC
     Dosage: 80 MG, QD
     Dates: start: 20130413, end: 20130916
  3. REGORAFENIB [Suspect]
     Indication: COLORECTAL CANCER METASTATIC
     Dosage: 80MG/D
     Dates: start: 20130527
  4. XERIAL [Concomitant]
     Indication: PALMAR-PLANTAR ERYTHRODYSAESTHESIA SYNDROME
     Dosage: 1 DF, QD
     Dates: start: 20130422
  5. LEVOTHYROX [Concomitant]
     Dosage: UNK
     Dates: start: 20130506

REACTIONS (10)
  - Palmar-plantar erythrodysaesthesia syndrome [Recovering/Resolving]
  - Dysphonia [Recovering/Resolving]
  - Diarrhoea [Recovered/Resolved]
  - Transaminases increased [Recovering/Resolving]
  - Lipase increased [Recovered/Resolved]
  - Blood thyroid stimulating hormone increased [Recovered/Resolved]
  - Back pain [None]
  - Colorectal cancer metastatic [None]
  - Palmar-plantar erythrodysaesthesia syndrome [None]
  - Dysphonia [None]
